FAERS Safety Report 8072698-0 (Version None)
Quarter: 2012Q1

REPORT INFORMATION
  Report Type: 
  Country: None (occurrence: None)
  Receive Date: 20120126
  Receipt Date: 20120120
  Transmission Date: 20120608
  Serious: No
  Sender: FDA-Public Use
  Company Number: US-PFIZER INC-2012017146

PATIENT
  Sex: Female

DRUGS (2)
  1. NITROSTAT [Suspect]
     Indication: CHEST PAIN
     Dosage: EVERY 5 MINUTES PRN
  2. ACCURETIC [Suspect]
     Dosage: UNK

REACTIONS (1)
  - CHEST PAIN [None]
